FAERS Safety Report 6893626-7 (Version None)
Quarter: 2010Q3

REPORT INFORMATION
  Report Type: 
  Country: None (occurrence: None)
  Receive Date: 20100731
  Receipt Date: 20091030
  Transmission Date: 20110219
  Serious: No
  Sender: FDA-Public Use
  Company Number: US-PFIZER INC-2009271696

PATIENT
  Sex: Male
  Weight: 74.83 kg

DRUGS (3)
  1. LIPITOR [Suspect]
     Indication: BLOOD CHOLESTEROL INCREASED
     Dosage: 10 MG, 1X/DAY
     Route: 048
  2. AVODART [Concomitant]
     Indication: PROSTATIC DISORDER
     Dosage: 0.5 MG, 1X/DAY
     Route: 048
  3. TAMSULOSIN HYDROCHLORIDE [Concomitant]
     Indication: PROSTATIC DISORDER
     Dosage: 0.4 MG, 1X/DAY
     Route: 048

REACTIONS (1)
  - INFLUENZA LIKE ILLNESS [None]
